FAERS Safety Report 7970837-0 (Version None)
Quarter: 2011Q4

REPORT INFORMATION
  Report Type: 
  Country: None (occurrence: None)
  Receive Date: 20111212
  Receipt Date: 20111206
  Transmission Date: 20120403
  Serious: Yes (Other)
  Sender: FDA-Public Use
  Company Number: US-GLAXOSMITHKLINE-A0952192A

PATIENT
  Age: 22 Year
  Sex: Female

DRUGS (6)
  1. KEPPRA XR [Concomitant]
  2. VITAMIN D [Concomitant]
  3. CALCIUM [Concomitant]
  4. FOLIC ACID [Concomitant]
  5. BIRTH CONTROL PILL [Concomitant]
  6. LAMICTAL [Suspect]
     Indication: EPILEPSY
     Dosage: 400MG PER DAY
     Route: 048
     Dates: start: 20110715

REACTIONS (3)
  - PRODUCT QUALITY ISSUE [None]
  - VOMITING [None]
  - CONVULSION [None]
